FAERS Safety Report 6471477-5 (Version None)
Quarter: 2009Q4

REPORT INFORMATION
  Report Type: 
  Country: None (occurrence: None)
  Receive Date: 20091203
  Receipt Date: 20080324
  Transmission Date: 20100525
  Serious: Yes (Other)
  Sender: FDA-Public Use
  Company Number: US-ELI_LILLY_AND_COMPANY-US200802007032

PATIENT
  Sex: Female
  Weight: 54.422 kg

DRUGS (8)
  1. BYETTA [Suspect]
     Indication: TYPE 2 DIABETES MELLITUS
     Dosage: 5 UG, 2/D
     Route: 058
     Dates: start: 20050101, end: 20050101
  2. BYETTA [Suspect]
     Dosage: 10 UG, 2/D
     Route: 058
     Dates: start: 20050101
  3. BYETTA [Suspect]
     Dosage: 10 UG, 2/D
     Route: 058
     Dates: start: 20050101
  4. GLUCOPHAGE [Concomitant]
     Indication: TYPE 2 DIABETES MELLITUS
     Dosage: 1000 MG, 2/D
     Route: 048
     Dates: end: 20060101
  5. GLUCOPHAGE [Concomitant]
     Dosage: 500 MG, 2/D
     Route: 048
     Dates: start: 20060101
  6. BABY ASPIRIN [Concomitant]
     Dosage: UNK, UNKNOWN
  7. LISINOPRIL [Concomitant]
     Dosage: UNK, DAILY (1/D)
  8. VITAMINS [Concomitant]
     Dosage: UNK, UNKNOWN

REACTIONS (6)
  - NASOPHARYNGITIS [None]
  - SINUSITIS [None]
  - THROAT IRRITATION [None]
  - UTERINE PROLAPSE [None]
  - VULVOVAGINAL PRURITUS [None]
  - WEIGHT DECREASED [None]
